FAERS Safety Report 5810605-9 (Version None)
Quarter: 2008Q3

REPORT INFORMATION
  Report Type: 
  Country: None (occurrence: None)
  Receive Date: 20080710
  Receipt Date: 20080624
  Transmission Date: 20090109
  Serious: Yes (Other)
  Sender: FDA-Public Use
  Company Number: 2008016602

PATIENT
  Age: 71 Year
  Sex: Female
  Weight: 87.9978 kg

DRUGS (1)
  1. LISTERINE WHITENING QUICK DISSOLVING STRIPS (NO ACTIVE INGREDIENT) [Suspect]
     Indication: DENTAL CARE
     Dosage: 1 STRIP TOP TEETH 2 X A DAY, ORAL
     Route: 048
     Dates: start: 20080601, end: 20080601

REACTIONS (1)
  - THERMAL BURN [None]
